FAERS Safety Report 14896158 (Version 2)
Quarter: 2020Q4

REPORT INFORMATION
  Report Type: Spontaneous
  Country: US (occurrence: US)
  Receive Date: 20180515
  Receipt Date: 20201112
  Transmission Date: 20210113
  Serious: Yes (Life-Threatening, Hospitalization, Other)
  Sender: FDA-Public Use
  Company Number: US-MACLEODS PHARMACEUTICALS US LTD-MAC2018013252

PATIENT

DRUGS (11)
  1. CLONIDINE. [Suspect]
     Active Substance: CLONIDINE
     Dosage: 0.2 MILLIGRAM, BID
     Route: 065
  2. ARIPIPRAZOLE. [Suspect]
     Active Substance: ARIPIPRAZOLE
     Indication: MANIA
     Dosage: 2.5 MILLIGRAM, QD
     Route: 065
  3. ONDANSETRON [Suspect]
     Active Substance: ONDANSETRON
     Indication: SLOW SPEECH
  4. CLONIDINE. [Suspect]
     Active Substance: CLONIDINE
     Indication: MANIA
     Dosage: 0.4 MILLIGRAM
     Route: 065
  5. ONDANSETRON [Suspect]
     Active Substance: ONDANSETRON
     Indication: DROOLING
     Dosage: 1 DOSAGE FORM, SINGLE, TOTAL
     Route: 042
  6. FLUOXETINE [Suspect]
     Active Substance: FLUOXETINE HYDROCHLORIDE
     Indication: PRODUCT USED FOR UNKNOWN INDICATION
     Dosage: 20 MILLIGRAM, QD
     Route: 065
  7. ONDANSETRON [Suspect]
     Active Substance: ONDANSETRON
     Indication: OROPHARYNGEAL PAIN
  8. ONDANSETRON [Suspect]
     Active Substance: ONDANSETRON
     Indication: ABDOMINAL PAIN
  9. ONDANSETRON [Suspect]
     Active Substance: ONDANSETRON
     Indication: STARING
  10. CYPROHEPTADINE. [Suspect]
     Active Substance: CYPROHEPTADINE
     Indication: INCREASED APPETITE
     Dosage: 12 MILLIGRAM, QD
     Route: 065
  11. CLONIDINE. [Suspect]
     Active Substance: CLONIDINE
     Dosage: 0.3 MILLIGRAM, QD
     Route: 065

REACTIONS (21)
  - Serotonin syndrome [Recovering/Resolving]
  - Urinary incontinence [Recovering/Resolving]
  - Clonus [Recovering/Resolving]
  - Staring [Recovering/Resolving]
  - Withdrawal syndrome [Unknown]
  - Abnormal behaviour [Recovering/Resolving]
  - Posturing [Recovering/Resolving]
  - Akathisia [Unknown]
  - Abdominal pain [Recovering/Resolving]
  - Tremor [Unknown]
  - Headache [Recovering/Resolving]
  - Agitation [Recovering/Resolving]
  - Echopraxia [Recovering/Resolving]
  - Drooling [Recovering/Resolving]
  - Oropharyngeal pain [Unknown]
  - Stereotypy [Recovering/Resolving]
  - Neuroleptic malignant syndrome [Unknown]
  - Slow speech [Unknown]
  - Aggression [Recovering/Resolving]
  - Hypertension [Unknown]
  - Cogwheel rigidity [Unknown]
